FAERS Safety Report 6609378-1 (Version None)
Quarter: 2010Q1

REPORT INFORMATION
  Report Type: 
  Country: None (occurrence: None)
  Receive Date: 20100224
  Receipt Date: 20100211
  Transmission Date: 20100710
  Serious: Yes (Hospitalization)
  Sender: FDA-Public Use
  Company Number: 1000011592

PATIENT
  Age: 71 Year
  Sex: Female

DRUGS (1)
  1. DILTIAZEM [Suspect]
     Indication: HYPERTENSION

REACTIONS (1)
  - ACUTE GENERALISED EXANTHEMATOUS PUSTULOSIS [None]
